FAERS Safety Report 5848321-X (Version None)
Quarter: 2008Q3

REPORT INFORMATION
  Report Type: 
  Country: None (occurrence: None)
  Receive Date: 20080818
  Receipt Date: 20080808
  Transmission Date: 20090109
  Serious: Yes (Life-Threatening, Hospitalization)
  Sender: FDA-Public Use
  Company Number: US-MERCK-0808USA01710

PATIENT
  Age: 73 Year
  Sex: Male

DRUGS (1)
  1. VYTORIN [Suspect]
     Indication: BLOOD CHOLESTEROL INCREASED
     Route: 048
     Dates: start: 20070712

REACTIONS (3)
  - ADENOCARCINOMA [None]
  - MALIGNANT MELANOMA [None]
  - NEOPLASM PROSTATE [None]
